FAERS Safety Report 9753154 (Version 2)
Quarter: 2013Q4

REPORT INFORMATION
  Report Type: Spontaneous
  Country: US (occurrence: US)
  Receive Date: 20131213
  Receipt Date: 20131213
  Transmission Date: 20140711
  Serious: No
  Sender: FDA-Public Use
  Company Number: US-GILEAD-2010-0026325

PATIENT
  Sex: Male
  Weight: 122.47 kg

DRUGS (9)
  1. LETAIRIS [Suspect]
     Indication: PULMONARY ARTERIAL HYPERTENSION
     Route: 048
     Dates: start: 20091002, end: 20100104
  2. WARFARIN [Concomitant]
  3. BUMEX [Concomitant]
  4. METOLAZONE [Concomitant]
  5. CLONIDINE [Concomitant]
  6. VERAPAMIL [Concomitant]
  7. NORCO [Concomitant]
  8. POTASSIUM [Concomitant]
  9. ASPIRIN [Concomitant]

REACTIONS (3)
  - Renal failure [Unknown]
  - Oedema [Unknown]
  - No therapeutic response [Unknown]
